FAERS Safety Report 21440301 (Version 1)
Quarter: 2022Q4

REPORT INFORMATION
  Report Type: Spontaneous
  Country: US (occurrence: US)
  Receive Date: 20221011
  Receipt Date: 20221011
  Transmission Date: 20230113
  Serious: Yes (Other)
  Sender: FDA-Public Use
  Company Number: US-AMNEAL PHARMACEUTICALS-2021-AMRX-05303

PATIENT
  Sex: Female
  Weight: 77 kg

DRUGS (3)
  1. LIORESAL [Suspect]
     Active Substance: BACLOFEN
     Dosage: 905 ?G, FLEX
     Route: 037
  2. LIORESAL [Suspect]
     Active Substance: BACLOFEN
     Dosage: UNK, INCREASED TITRATION
     Route: 037
  3. BACLOFEN [Concomitant]
     Active Substance: BACLOFEN
     Route: 048

REACTIONS (3)
  - Therapy non-responder [Recovered/Resolved]
  - Complication associated with device [Recovered/Resolved]
  - Device infusion issue [Recovered/Resolved]

NARRATIVE: CASE EVENT DATE: 20210101
